FAERS Safety Report 8004065-X (Version None)
Quarter: 2011Q4

REPORT INFORMATION
  Report Type: 
  Country: None (occurrence: None)
  Receive Date: 20111222
  Receipt Date: 20111215
  Transmission Date: 20120403
  Serious: Yes (Other)
  Sender: FDA-Public Use
  Company Number: JP-ALLERGAN-1107992US

PATIENT
  Age: 63 Year
  Sex: Female

DRUGS (4)
  1. ADALAT [Concomitant]
     Dosage: UNK
     Route: 048
  2. BOTOX [Suspect]
     Indication: MUSCLE SPASMS
     Dosage: 100 UNITS, SINGLE
     Route: 030
     Dates: start: 20110509, end: 20110509
  3. KETAS [Concomitant]
     Route: 048
  4. DIOVAN [Concomitant]
     Route: 048

REACTIONS (2)
  - RADIUS FRACTURE [None]
  - FALL [None]
